FAERS Safety Report 21172948 (Version 1)
Quarter: 2022Q3

REPORT INFORMATION
  Report Type: Spontaneous
  Country: US (occurrence: None)
  Receive Date: 20220804
  Receipt Date: 20220804
  Transmission Date: 20221026
  Serious: No
  Sender: FDA-Public Use
  Company Number: None

PATIENT

DRUGS (1)
  1. TAVABOROLE [Suspect]
     Active Substance: TAVABOROLE
     Indication: Onychomycosis
     Dosage: FREQUENCY : AT BEDTIME;?
     Route: 061

REACTIONS (2)
  - Drug ineffective [None]
  - Rash [None]
